FAERS Safety Report 5277816-5 (Version None)
Quarter: 2007Q1

REPORT INFORMATION
  Report Type: 
  Country: None (occurrence: None)
  Receive Date: 20070327
  Receipt Date: 20070315
  Transmission Date: 20070707
  Serious: Yes (Death, Other)
  Sender: FDA-Public Use
  Company Number: US-PFIZER INC-2006150091

PATIENT
  Sex: Male
  Weight: 99.8 kg

DRUGS (2)
  1. BEXTRA [Suspect]
     Indication: PAIN MANAGEMENT
     Dates: start: 20021001, end: 20050201
  2. BEXTRA [Suspect]
     Indication: ARTHRITIS

REACTIONS (2)
  - CARDIAC FAILURE CONGESTIVE [None]
  - MYOCARDIAL INFARCTION [None]
